FAERS Safety Report 8964792 (Version 2)
Quarter: 2013Q2

REPORT INFORMATION
  Report Type: Report from Study
  Country: GB (occurrence: GB)
  Receive Date: 20121214
  Receipt Date: 20130531
  Transmission Date: 20140414
  Serious: Yes (Hospitalization, Other)
  Sender: FDA-Public Use
  Company Number: GB-ROCHE-745264

PATIENT
  Sex: Male

DRUGS (11)
  1. RITUXIMAB [Suspect]
     Indication: RHEUMATOID ARTHRITIS
     Dosage: LAST DOSE TAKEN 14/JUN/2012
     Route: 065
  2. PARACETAMOL [Concomitant]
     Route: 065
  3. SALBUTAMOL [Concomitant]
     Dosage: 2 PUFFS
     Route: 065
  4. ADCAL-D3 [Concomitant]
     Route: 065
  5. ASPIRIN [Concomitant]
     Route: 065
  6. CELECOXIB [Concomitant]
     Route: 065
  7. FUROSEMIDE [Concomitant]
     Route: 065
  8. OMEPRAZOLE [Concomitant]
     Route: 065
  9. PREDNISOLONE [Concomitant]
     Route: 065
  10. RISEDRONATE [Concomitant]
     Route: 065
  11. TIOTROPIUM [Concomitant]
     Route: 065

REACTIONS (4)
  - Pneumonia [Recovered/Resolved]
  - Pulmonary hypertension [Unknown]
  - Lung infection [Unknown]
  - Infective exacerbation of bronchiectasis [Unknown]
